FAERS Safety Report 19154923 (Version 1)
Quarter: 2021Q2

REPORT INFORMATION
  Report Type: Spontaneous
  Country: GB (occurrence: GB)
  Receive Date: 20210419
  Receipt Date: 20210419
  Transmission Date: 20210717
  Serious: Yes (Death, Hospitalization, Disabling, Other)
  Sender: FDA-Public Use
  Company Number: NVSC2021GB087520

PATIENT
  Age: 61 Year
  Sex: Female

DRUGS (2)
  1. ARTEMETHER,LUMEFANTRINE [Suspect]
     Active Substance: ARTEMETHER\LUMEFANTRINE
     Indication: MALARIA
     Dosage: ARTEMETHER 80MG/LUMEFANTRINE 480MG
     Route: 048
  2. AMOXICILLIN. [Concomitant]
     Active Substance: AMOXICILLIN
     Indication: PRODUCT USED FOR UNKNOWN INDICATION
     Route: 065

REACTIONS (10)
  - Acute kidney injury [Not Recovered/Not Resolved]
  - Blood glucose decreased [Not Recovered/Not Resolved]
  - Haemoglobinuria [Not Recovered/Not Resolved]
  - Syncope [Not Recovered/Not Resolved]
  - Depressed level of consciousness [Not Recovered/Not Resolved]
  - Lethargy [Not Recovered/Not Resolved]
  - Coombs positive haemolytic anaemia [Fatal]
  - Chromaturia [Not Recovered/Not Resolved]
  - Tachycardia [Not Recovered/Not Resolved]
  - Normocytic anaemia [Not Recovered/Not Resolved]
